FAERS Safety Report 17925651 (Version 1)
Quarter: 2020Q2

REPORT INFORMATION
  Report Type: Other
  Country: US (occurrence: US)
  Receive Date: 20200623
  Receipt Date: 20200623
  Transmission Date: 20200714
  Serious: Yes (Other)
  Sender: FDA-Public Use
  Company Number: US-KALEO, INC.-2020KL000076

PATIENT
  Age: 2 Year
  Sex: Female

DRUGS (1)
  1. AUVI-Q [Suspect]
     Active Substance: EPINEPHRINE
     Route: 047

REACTIONS (3)
  - Lenticular opacities [Recovered/Resolved]
  - Exposure via eye contact [Recovered/Resolved]
  - Intraocular lens implant [Recovered/Resolved]
